FAERS Safety Report 6707712-5 (Version None)
Quarter: 2010Q2

REPORT INFORMATION
  Report Type: 
  Country: None (occurrence: None)
  Receive Date: 20100503
  Receipt Date: 20090923
  Transmission Date: 20101027
  Serious: No
  Sender: FDA-Public Use
  Company Number: US-ASTRAZENECA-2009SE14868

PATIENT
  Age: 562 Month
  Sex: Female
  Weight: 82.6 kg

DRUGS (3)
  1. NEXIUM [Suspect]
     Indication: GASTROOESOPHAGEAL REFLUX DISEASE
  2. TOPROL-XL [Concomitant]
  3. ORTHO-NOVUM [Concomitant]

REACTIONS (2)
  - FATIGUE [None]
  - VITAMIN D DEFICIENCY [None]
